FAERS Safety Report 10793339 (Version 2)
Quarter: 2015Q1

REPORT INFORMATION
  Report Type: Report from Study
  Country: JP (occurrence: JP)
  Receive Date: 20150213
  Receipt Date: 20150320
  Transmission Date: 20150721
  Serious: No
  Sender: FDA-Public Use
  Company Number: JP-AMGEN-JPNCT2015013894

PATIENT
  Sex: Female
  Weight: 50 kg

DRUGS (13)
  1. PURSENNID                          /00142207/ [Concomitant]
     Active Substance: SENNOSIDES A AND B
     Dosage: 24 MG, QD
     Route: 048
     Dates: start: 20130123
  2. LANSOPRAZOLE. [Concomitant]
     Active Substance: LANSOPRAZOLE
     Dosage: 15 MG, QD
     Route: 048
     Dates: start: 20120625
  3. DENOSUMAB [Suspect]
     Active Substance: DENOSUMAB
     Indication: METASTASES TO BONE
     Dosage: 120 MG, UNK
     Route: 058
     Dates: start: 20120723
  4. HALAVEN [Concomitant]
     Active Substance: ERIBULIN MESYLATE
     Dosage: UNK
     Route: 065
     Dates: start: 20130415
  5. DECADRON                           /00016002/ [Concomitant]
     Active Substance: DEXAMETHASONE
     Indication: PROPHYLAXIS
     Dosage: 16 MG, QD
     Route: 042
     Dates: start: 20120702
  6. MAGNESIUM OXIDE. [Concomitant]
     Active Substance: MAGNESIUM OXIDE
     Dosage: 2 G, QD
     Route: 048
     Dates: start: 20130123
  7. EPIRUBICIN [Concomitant]
     Active Substance: EPIRUBICIN
     Indication: NEOPLASM MALIGNANT
     Dosage: 90 MG, QD
     Route: 042
     Dates: start: 20120702, end: 20120918
  8. ASPARA-CA [Concomitant]
     Active Substance: CALCIUM ASPARTATE
     Dosage: 1.2 G, QD
     Route: 048
     Dates: start: 20120827, end: 20130313
  9. FASLODEX [Concomitant]
     Active Substance: FULVESTRANT
     Dosage: UNK
     Route: 065
     Dates: start: 20120723
  10. NAUZELIN [Concomitant]
     Active Substance: DOMPERIDONE
     Dosage: 30 MG, QD
     Route: 048
     Dates: start: 20130205
  11. CYCLOPHOSPHAMIDE. [Concomitant]
     Active Substance: CYCLOPHOSPHAMIDE
     Indication: NEOPLASM MALIGNANT
     Dosage: 600 MG, QD
     Route: 042
     Dates: start: 20120702, end: 20120918
  12. AVASTIN [Concomitant]
     Active Substance: BEVACIZUMAB
     Indication: NEOPLASM MALIGNANT
     Dosage: 500 MG, QD
     Route: 042
     Dates: start: 20121009, end: 20130318
  13. PACLITAXEL. [Concomitant]
     Active Substance: PACLITAXEL
     Indication: NEOPLASM MALIGNANT
     Dosage: 90 MG, QD
     Route: 042
     Dates: start: 20121009, end: 20130318

REACTIONS (5)
  - Hypokalaemia [Recovered/Resolved]
  - Exposed bone in jaw [Recovering/Resolving]
  - Hypoalbuminaemia [Recovered/Resolved]
  - Hypoproteinaemia [Recovered/Resolved]
  - Hypocalcaemia [Recovered/Resolved]

NARRATIVE: CASE EVENT DATE: 20130422
